FAERS Safety Report 22526842 (Version 1)
Quarter: 2023Q2

REPORT INFORMATION
  Report Type: Spontaneous
  Country: GB (occurrence: GB)
  Receive Date: 20230606
  Receipt Date: 20230606
  Transmission Date: 20230721
  Serious: Yes (Other)
  Sender: FDA-Public Use
  Company Number: GB-STRIDES PHARMA UK LTD.-2023SP007292

PATIENT
  Age: 82 Year
  Sex: Male

DRUGS (3)
  1. METFORMIN [Suspect]
     Active Substance: METFORMIN HYDROCHLORIDE
     Indication: Diabetes mellitus
     Dosage: 1000 MILLIGRAM, QD WITH EVENING MEAL  (PROLONGED RELEASE TABLET)
     Route: 048
     Dates: start: 20230511, end: 20230511
  2. METFORMIN [Suspect]
     Active Substance: METFORMIN HYDROCHLORIDE
     Indication: Diabetes mellitus
     Dosage: 500 MILLIGRAM (FILM-COATED TABLET; CRESENT PHARMACEUTICALS)
     Route: 065
  3. METFORMIN [Suspect]
     Active Substance: METFORMIN HYDROCHLORIDE
     Dosage: 500 MILLIGRAM (FILM-COATED TABLET; CRESENT PHARMACEUTICALS)
     Route: 065

REACTIONS (2)
  - Foreign body in throat [Recovered/Resolved]
  - Circumstance or information capable of leading to medication error [Unknown]

NARRATIVE: CASE EVENT DATE: 20230511
